FAERS Safety Report 14312089 (Version 1)
Quarter: 2017Q4

REPORT INFORMATION
  Report Type: Spontaneous
  Country: DE (occurrence: DE)
  Receive Date: 20171221
  Receipt Date: 20171221
  Transmission Date: 20180321
  Serious: Yes (Life-Threatening, Hospitalization, Other)
  Sender: FDA-Public Use
  Company Number: DE-WEST-WARD PHARMACEUTICALS CORP.-DE-H14001-17-04962

PATIENT
  Age: 30 Year
  Sex: Male

DRUGS (4)
  1. CIPROFLOXACIN. [Suspect]
     Active Substance: CIPROFLOXACIN
     Indication: PERIODONTITIS
     Dosage: 1 G, DAILY
     Route: 065
  2. AMOXICILLIN. [Suspect]
     Active Substance: AMOXICILLIN
     Indication: PERIODONTITIS
     Dosage: UNK(PERIORAL) ()
     Route: 048
  3. AMPICILLIN SODIUM, SULBACTAM SODIUM [Suspect]
     Active Substance: AMPICILLIN SODIUM\SULBACTAM SODIUM
     Indication: PERIODONTITIS
     Dosage: UNK ()
     Route: 042
  4. BENZYLPENICILLIN [Suspect]
     Active Substance: PENICILLIN G
     Indication: PERIODONTITIS
     Dosage: UNK ()
     Route: 042

REACTIONS (12)
  - Hypotension [Recovering/Resolving]
  - Renal impairment [Unknown]
  - Oedema peripheral [Recovered/Resolved]
  - Dyspnoea [Recovered/Resolved]
  - Hypervolaemia [Unknown]
  - Systemic inflammatory response syndrome [Unknown]
  - Conjunctivitis [Unknown]
  - Tachycardia [Recovered/Resolved]
  - Tachypnoea [Recovered/Resolved]
  - Generalised oedema [Unknown]
  - Acute generalised exanthematous pustulosis [Recovering/Resolving]
  - Hepatic enzyme increased [Unknown]
